FAERS Safety Report 5224931-8 (Version None)
Quarter: 2007Q1

REPORT INFORMATION
  Report Type: 
  Country: None (occurrence: None)
  Receive Date: 20070126
  Receipt Date: 20070112
  Transmission Date: 20070707
  Serious: Yes (Hospitalization)
  Sender: FDA-Public Use
  Company Number: 2007AL000262

PATIENT
  Age: 67 Year
  Sex: Female

DRUGS (1)
  1. MIRTAZAPINE [Suspect]
     Indication: DEPRESSION
     Dosage: 15 MG; HS

REACTIONS (11)
  - ABDOMINAL PAIN [None]
  - AGITATION [None]
  - BLOOD CHLORIDE DECREASED [None]
  - BLOOD GLUCOSE DECREASED [None]
  - BRADYKINESIA [None]
  - DEHYDRATION [None]
  - HYPONATRAEMIA [None]
  - INAPPROPRIATE ANTIDIURETIC HORMONE SECRETION [None]
  - ORAL INTAKE REDUCED [None]
  - TREMOR [None]
  - URINE OSMOLARITY INCREASED [None]
